FAERS Safety Report 6235846-0 (Version None)
Quarter: 2009Q2

REPORT INFORMATION
  Report Type: 
  Country: None (occurrence: None)
  Receive Date: 20090617
  Receipt Date: 20090617
  Transmission Date: 20091009
  Serious: No
  Sender: FDA-Public Use
  Company Number: None

PATIENT
  Age: 48 Year
  Sex: Female
  Weight: 86.1834 kg

DRUGS (1)
  1. ZICAM SWABS MATRIXX [Suspect]
     Indication: INFLUENZA
     Dosage: SWAB 2X NASAL
     Route: 045
     Dates: start: 20080303, end: 20080304

REACTIONS (1)
  - ANOSMIA [None]
